FAERS Safety Report 20626608 (Version 1)
Quarter: 2022Q1

REPORT INFORMATION
  Report Type: Spontaneous
  Country: IT (occurrence: IT)
  Receive Date: 20220323
  Receipt Date: 20220323
  Transmission Date: 20220424
  Serious: Yes (Other)
  Sender: FDA-Public Use
  Company Number: IT-MYLANLABS-2022M1021287

PATIENT
  Age: 60 Year
  Sex: Female

DRUGS (6)
  1. LETROZOLE [Suspect]
     Active Substance: LETROZOLE
     Indication: Breast cancer
     Dosage: UNK
     Route: 065
     Dates: start: 201502, end: 201802
  2. DENOSUMAB [Suspect]
     Active Substance: DENOSUMAB
     Indication: Supplementation therapy
     Dosage: UNK
     Route: 065
     Dates: start: 201609
  3. DENOSUMAB [Suspect]
     Active Substance: DENOSUMAB
     Dosage: UNK
     Route: 065
     Dates: start: 201703
  4. DENOSUMAB [Suspect]
     Active Substance: DENOSUMAB
     Dosage: UNK
     Route: 065
     Dates: start: 201709
  5. DENOSUMAB [Suspect]
     Active Substance: DENOSUMAB
     Dosage: UNK
     Route: 065
     Dates: start: 201803
  6. CALCIUM\VITAMIN D [Concomitant]
     Active Substance: CALCIUM\VITAMIN D
     Indication: Supplementation therapy
     Dosage: UNK
     Route: 065
     Dates: start: 201609

REACTIONS (2)
  - Rebound effect [Unknown]
  - Spinal fracture [Unknown]
